FAERS Safety Report 9009043 (Version 2)
Quarter: 2013Q1

REPORT INFORMATION
  Report Type: Spontaneous
  Country: US (occurrence: US)
  Receive Date: 20130111
  Receipt Date: 20130204
  Transmission Date: 20140127
  Serious: Yes (Hospitalization)
  Sender: FDA-Public Use
  Company Number: US-VIROPHARMA INCORPORATED-20130104CINRY3812

PATIENT
  Age: 21 None
  Sex: Female

DRUGS (15)
  1. CINRYZE (C1 ESTERASE INHIBITOR (HUMAN)) [Suspect]
     Indication: HEREDITARY ANGIOEDEMA
     Dates: start: 201205
  2. NEXIUM [Concomitant]
     Indication: GASTROOESOPHAGEAL REFLUX DISEASE
     Route: 048
     Dates: start: 20121231, end: 20130106
  3. YASMIN [Concomitant]
     Indication: CONTRACEPTION
     Route: 048
     Dates: start: 20121231, end: 20130106
  4. DULCOLAX [Concomitant]
     Indication: CONSTIPATION
     Route: 048
     Dates: start: 20121231, end: 20130106
  5. REGLAN [Concomitant]
     Indication: GASTROOESOPHAGEAL REFLUX DISEASE
     Route: 048
     Dates: start: 20121231, end: 20130106
  6. ULTRAM ER [Concomitant]
     Indication: PAIN
     Route: 048
     Dates: start: 20121231, end: 20130106
  7. MS CONTIN [Concomitant]
     Indication: PAIN
     Route: 048
     Dates: start: 20121231, end: 20130106
  8. VITAMIN D NOS [Concomitant]
     Indication: HYPOVITAMINOSIS
     Route: 048
     Dates: start: 20121231, end: 20130106
  9. BACLOFEN [Concomitant]
     Indication: MYELITIS TRANSVERSE
     Route: 048
     Dates: start: 20121231, end: 20130106
  10. KEPPRA [Concomitant]
     Indication: CONVULSION
     Route: 048
     Dates: start: 20121231, end: 20130106
  11. LYRICA [Concomitant]
     Indication: PAIN
     Route: 048
     Dates: start: 20121231, end: 20130106
  12. SENNA [Concomitant]
     Indication: CONSTIPATION
     Route: 048
     Dates: start: 20121231, end: 20130106
  13. ZOFRAN [Concomitant]
     Indication: GASTROOESOPHAGEAL REFLUX DISEASE
     Route: 065
  14. FIRAZYR [Concomitant]
     Indication: HEREDITARY ANGIOEDEMA
     Route: 065
  15. LACTULOSE [Concomitant]
     Indication: CONSTIPATION
     Route: 065

REACTIONS (5)
  - Dyspnoea [Recovered/Resolved]
  - Infusion related reaction [Recovered/Resolved]
  - Hereditary angioedema [Recovered/Resolved]
  - Therapy change [Not Recovered/Not Resolved]
  - Incorrect drug administration rate [Not Recovered/Not Resolved]
